FAERS Safety Report 21303669 (Version 1)
Quarter: 2022Q3

REPORT INFORMATION
  Report Type: Spontaneous
  Country: US (occurrence: None)
  Receive Date: 20220907
  Receipt Date: 20220907
  Transmission Date: 20221027
  Serious: Yes (Other)
  Sender: FDA-Public Use
  Company Number: None

PATIENT
  Age: 28 Year
  Sex: Female
  Weight: 51.1 kg

DRUGS (4)
  1. VENOFER [Suspect]
     Active Substance: IRON SUCROSE
     Indication: Anaemia
     Dosage: OTHER FREQUENCY : BIWEEKLY;?
     Route: 041
     Dates: start: 20220519, end: 20220602
  2. Bendadryl 50mg capsules [Concomitant]
     Dates: start: 20220602, end: 20220602
  3. Pepcid 20mg IV [Concomitant]
     Dates: start: 20220602, end: 20220602
  4. Tylenol 500mg tablet (x2) [Concomitant]
     Dates: start: 20220602, end: 20220602

REACTIONS (6)
  - Peripheral swelling [None]
  - Peripheral swelling [None]
  - Unevaluable event [None]
  - Erythema [None]
  - Burning sensation [None]
  - Pruritus [None]

NARRATIVE: CASE EVENT DATE: 20220602
